FAERS Safety Report 7826084-6 (Version None)
Quarter: 2011Q4

REPORT INFORMATION
  Report Type: 
  Country: None (occurrence: None)
  Receive Date: 20111019
  Receipt Date: 20111005
  Transmission Date: 20120403
  Serious: No
  Sender: FDA-Public Use
  Company Number: US-ROXANE LABORATORIES, INC.-2011-RO-01420RO

PATIENT
  Sex: Female

DRUGS (1)
  1. BALSALAZIDE DISODIUM [Suspect]
     Indication: CROHN'S DISEASE

REACTIONS (1)
  - ARTHRALGIA [None]
